FAERS Safety Report 9841978 (Version 1)
Quarter: 2013Q4

REPORT INFORMATION
  Report Type: Spontaneous
  Country: US (occurrence: None)
  Receive Date: 20131219
  Receipt Date: 20131219
  Transmission Date: 20140711
  Serious: Yes (Death)
  Sender: FDA-Public Use
  Company Number: 163-20785-13051279

PATIENT
  Age: 68 Year
  Sex: Female

DRUGS (7)
  1. THALOMID [Suspect]
     Indication: PLASMA CELL MYELOMA
     Dosage: 100 MG, 1 IN 1 D, PO
     Route: 048
     Dates: start: 201106, end: 201108
  2. TREANDA (BENDAMUSTINE HYDROCHLORIDE) (UNKNOWN) [Concomitant]
     Dates: start: 201106, end: 201108
  3. KYPROLIS (CARFILZOMIB) (UNKNOWN) [Concomitant]
  4. DECADRON (DEXAMETHASONE) (UNKNOWN) [Concomitant]
  5. CYTOXAN (CYCLOPHOSPHAMIDE) (UNKNOWN) [Concomitant]
  6. VELCADE (BORTEZOMIB) (UNKNOWN) [Concomitant]
  7. DOXIL (DOXORUBICIN HYDROCHLORIDE) (UNKNOWN) [Concomitant]

REACTIONS (1)
  - Plasma cell myeloma [None]
